FAERS Safety Report 6843185-X (Version None)
Quarter: 2010Q3

REPORT INFORMATION
  Report Type: 
  Country: None (occurrence: None)
  Receive Date: 20100715
  Receipt Date: 20100706
  Transmission Date: 20110219
  Serious: No
  Sender: FDA-Public Use
  Company Number: US-BIOGENIDEC-2010BI023100

PATIENT
  Sex: Female

DRUGS (2)
  1. TYSABRI [Suspect]
     Indication: MULTIPLE SCLEROSIS
     Route: 042
     Dates: start: 20080208
  2. VESICARE [Concomitant]
     Indication: POLLAKIURIA
     Dates: start: 20100101, end: 20100101

REACTIONS (3)
  - GAIT DISTURBANCE [None]
  - PERONEAL NERVE PALSY [None]
  - URINARY INCONTINENCE [None]
